FAERS Safety Report 8583852-3 (Version None)
Quarter: 2012Q3

REPORT INFORMATION
  Report Type: 
  Country: None (occurrence: None)
  Receive Date: 20120810
  Receipt Date: 20120731
  Transmission Date: 20120928
  Serious: Yes (Hospitalization)
  Sender: FDA-Public Use
  Company Number: US-009507513-1208USA000522

PATIENT

DRUGS (16)
  1. VITAMINS (UNSPECIFIED) [Concomitant]
     Dosage: 1 TABLET, QD
     Route: 048
  2. FLUTICASONE PROPIONATE [Concomitant]
     Dosage: 1 PUFF IN EACH NOSTRIL, QD
     Route: 045
  3. FLUTICASONE PROPIONATE [Concomitant]
     Dosage: 1 PUFF IN EACH NOSTRIL, QD
     Route: 045
  4. TRAMADOL HYDROCHLORIDE [Concomitant]
     Dosage: 50 MG, PRN
  5. PRAVASTATIN SODIUM [Concomitant]
     Dosage: 40 MG, QD
     Route: 048
  6. PHENERGAN HCL [Concomitant]
     Indication: NAUSEA
     Dosage: UNK
  7. HYDROCHLOROTHIAZIDE [Concomitant]
     Dosage: 25 MG, QD
     Route: 048
  8. SIMETHICONE [Concomitant]
     Dosage: 125 MG, UNK
     Route: 048
  9. SYNTHROID [Concomitant]
     Dosage: 88 MICROGRAM, QAM
     Route: 048
  10. PEG-INTRON [Suspect]
     Indication: HEPATITIS C
     Dosage: 150 MICROGRAM, QW
     Route: 058
     Dates: start: 20120413, end: 20120101
  11. RIBAVIRIN [Suspect]
     Indication: HEPATITIS C
     Route: 048
  12. ALPRAZOLAM [Concomitant]
     Dosage: 0.25 MG, TID
     Route: 048
  13. PROZAC [Concomitant]
     Dosage: 40 MG, QAM
     Route: 048
  14. ASPIRIN [Concomitant]
     Dosage: 325 MG, QD
     Route: 048
  15. BENTYL [Concomitant]
     Dosage: 10 MG, PRN
     Route: 048
  16. MUPIROCIN [Concomitant]
     Dosage: 1 APPLICATION TO AFFECTED AREA SMALL AMOUNT, TID
     Route: 061

REACTIONS (2)
  - ANAEMIA [None]
  - DEPRESSION [None]
